FAERS Safety Report 13927201 (Version 1)
Quarter: 2017Q3

REPORT INFORMATION
  Report Type: Spontaneous
  Country: GR (occurrence: GR)
  Receive Date: 20170901
  Receipt Date: 20170901
  Transmission Date: 20171127
  Serious: Yes (Other)
  Sender: FDA-Public Use
  Company Number: GR-GLAXOSMITHKLINE-GR2017134235

PATIENT
  Age: 36 Year
  Sex: Female
  Weight: 81.5 kg

DRUGS (5)
  1. PONSTAN [Suspect]
     Active Substance: MEFENAMIC ACID
     Indication: BRONCHITIS
     Dosage: 1 DF, 500 MG;EVERY 4-5 HOURS DAILY
     Route: 048
     Dates: start: 20150125, end: 20150128
  2. CLARIPEN [Suspect]
     Active Substance: CLARITHROMYCIN
     Indication: BRONCHITIS
     Dosage: 1 DF, BID,ONE DF TWICE DAILY 500 MG
     Route: 048
     Dates: start: 20150201, end: 20150203
  3. UNIPHYLLIN [Suspect]
     Active Substance: THEOPHYLLINE ANHYDROUS
     Indication: BRONCHITIS
     Dosage: 1 DF, TID,ONE TABLESPOON THREE TIMES PER DAY
     Route: 048
     Dates: start: 20150206, end: 20150210
  4. AVAMYS [Suspect]
     Active Substance: FLUTICASONE FUROATE
     Indication: BRONCHITIS
     Dosage: 4 DF, TID;TWO NASAL INHALATIONS IN EACH NOSTRIL THREE TIMES PER DAY
     Route: 045
     Dates: start: 20150206, end: 20150210
  5. VIBRAMYCIN [Suspect]
     Active Substance: DOXYCYCLINE
     Indication: BRONCHITIS
     Dosage: 1 DF, BID;ONE DF TWICE DAILY, 100 MG
     Route: 048
     Dates: start: 20150206, end: 20150210

REACTIONS (2)
  - Abortion induced [Unknown]
  - Exposure during pregnancy [Unknown]
